FAERS Safety Report 12581284 (Version 2)
Quarter: 2016Q3

REPORT INFORMATION
  Report Type: Report from Study
  Country: US (occurrence: US)
  Receive Date: 20160721
  Receipt Date: 20160802
  Transmission Date: 20161109
  Serious: Yes (Death)
  Sender: FDA-Public Use
  Company Number: US-ACTELION-A-US2016-139380

PATIENT
  Age: 11 Month
  Sex: Male

DRUGS (2)
  1. SILDENAFIL. [Concomitant]
     Active Substance: SILDENAFIL
  2. TRACLEER [Suspect]
     Active Substance: BOSENTAN
     Indication: PULMONARY HYPERTENSION
     Dosage: 6 MG, BID
     Route: 048
     Dates: start: 20160519, end: 20160709

REACTIONS (3)
  - Respiratory failure [Fatal]
  - Tricuspid valve incompetence [Fatal]
  - Respiratory disorder [Fatal]
